FAERS Safety Report 9170556 (Version 1)
Quarter: 2013Q1

REPORT INFORMATION
  Report Type: Spontaneous
  Country: US (occurrence: None)
  Receive Date: 20130315
  Receipt Date: 20130315
  Transmission Date: 20140127
  Serious: Yes (Life-Threatening)
  Sender: FDA-Public Use
  Company Number: None

PATIENT
  Age: 23 Year
  Sex: Male
  Weight: 71.8 kg

DRUGS (3)
  1. PONATINIB [Suspect]
     Indication: CHRONIC MYELOID LEUKAEMIA
     Route: 048
     Dates: start: 20130225, end: 20130306
  2. PONATINIB [Suspect]
     Route: 048
     Dates: start: 20130225, end: 20130306
  3. ALLOPURINOL 300 MG TAB NOR [Concomitant]

REACTIONS (5)
  - Respiratory failure [None]
  - Pulmonary oedema [None]
  - Pneumonia [None]
  - Human rhinovirus test positive [None]
  - Candida test positive [None]
